FAERS Safety Report 21665290 (Version 1)
Quarter: 2022Q4

REPORT INFORMATION
  Report Type: Spontaneous
  Country: CN (occurrence: CN)
  Receive Date: 20221201
  Receipt Date: 20221201
  Transmission Date: 20230113
  Serious: Yes (Other)
  Sender: FDA-Public Use
  Company Number: None

PATIENT
  Age: 46 Year
  Sex: Male
  Weight: 63.3 kg

DRUGS (6)
  1. CYCLOPHOSPHAMIDE [Suspect]
     Active Substance: CYCLOPHOSPHAMIDE
     Indication: Acute lymphocytic leukaemia
     Dosage: 1200MG, QD, DILUTED WITH SODIUM CHLORIDE 250 ML
     Route: 041
     Dates: start: 20221109, end: 20221109
  2. SODIUM CHLORIDE [Suspect]
     Active Substance: SODIUM CHLORIDE
     Indication: Medication dilution
     Dosage: 250 ML, QD, USED TO DILUTE CYCLOPHOSPHAMIDE 1200 MG
     Route: 065
     Dates: start: 20221109, end: 20221109
  3. SODIUM CHLORIDE [Suspect]
     Active Substance: SODIUM CHLORIDE
     Dosage: 250 ML, QD, USED TO DILUTE DAUNORUBICIN HYDROCHLORIDE 60 MG
     Route: 065
     Dates: start: 20221109, end: 20221111
  4. SODIUM CHLORIDE [Suspect]
     Active Substance: SODIUM CHLORIDE
     Dosage: 20 ML, ONCE IN 7 DAYS, USED TO DILUTE VINCRISTINE SULFATE 2 MG
     Route: 065
     Dates: start: 20221109, end: 20221116
  5. DAUNORUBICIN HYDROCHLORIDE [Suspect]
     Active Substance: DAUNORUBICIN HYDROCHLORIDE
     Indication: Acute lymphocytic leukaemia
     Dosage: 60MG, QD, DILUTED WITH SODIUM CHLORIDE 250 ML
     Route: 041
     Dates: start: 20221109, end: 20221111
  6. VINCRISTINE SULFATE [Suspect]
     Active Substance: VINCRISTINE SULFATE
     Indication: Acute lymphocytic leukaemia
     Dosage: 2MG, ONCE IN 7 DAYS, DILUTED WITH SODIUM CHLORIDE 20 ML
     Route: 042
     Dates: start: 20221109, end: 20221116

REACTIONS (2)
  - Myelosuppression [Recovering/Resolving]
  - Platelet count decreased [Recovering/Resolving]

NARRATIVE: CASE EVENT DATE: 20221120
